FAERS Safety Report 8587041-8 (Version None)
Quarter: 2012Q3

REPORT INFORMATION
  Report Type: 
  Country: None (occurrence: None)
  Receive Date: 20120810
  Receipt Date: 20120803
  Transmission Date: 20120928
  Serious: Yes (Other)
  Sender: FDA-Public Use
  Company Number: JP-VERTEX PHARMACEUTICALS INC.-AE-2012-011832

PATIENT
  Age: 64 Year
  Sex: Female

DRUGS (9)
  1. REBETOL [Concomitant]
     Route: 048
     Dates: start: 20120724
  2. PRIMPERAN TAB [Concomitant]
     Route: 048
  3. TELAVIC (TELAPREVIR) [Suspect]
     Indication: HEPATITIS C
     Route: 048
     Dates: start: 20120508, end: 20120709
  4. REBETOL [Concomitant]
     Indication: HEPATITIS C
     Route: 048
     Dates: start: 20120508, end: 20120604
  5. LIPIDIL [Concomitant]
     Route: 048
     Dates: start: 20120710
  6. LOXOPROFEN [Concomitant]
     Route: 048
     Dates: start: 20120508
  7. SELBEX [Concomitant]
     Route: 048
     Dates: start: 20120508
  8. REBETOL [Concomitant]
     Route: 048
     Dates: start: 20120605, end: 20120709
  9. PEGINTERFERON ALFA-2B [Concomitant]
     Indication: HEPATITIS C
     Route: 058
     Dates: start: 20120508

REACTIONS (1)
  - WHITE BLOOD CELL COUNT DECREASED [None]
